FAERS Safety Report 7166321-7 (Version None)
Quarter: 2010Q4

REPORT INFORMATION
  Report Type: 
  Country: None (occurrence: None)
  Receive Date: 20101216
  Receipt Date: 20100921
  Transmission Date: 20110411
  Serious: No
  Sender: FDA-Public Use
  Company Number: US-ABBOTT-10P-163-0674015-00

PATIENT

DRUGS (2)
  1. TRILIPIX [Suspect]
  2. UNKNOWN STATIN [Concomitant]

REACTIONS (1)
  - BLOOD CREATININE INCREASED [None]
